FAERS Safety Report 18825594 (Version 2)
Quarter: 2021Q1

REPORT INFORMATION
  Report Type: Report from Study
  Country: IT (occurrence: IT)
  Receive Date: 20210202
  Receipt Date: 20210205
  Transmission Date: 20210419
  Serious: Yes (Death, Other)
  Sender: FDA-Public Use
  Company Number: IT-PFIZER INC-2021089586

PATIENT
  Age: 71 Year
  Sex: Female

DRUGS (14)
  1. MESNA. [Concomitant]
     Active Substance: MESNA
     Indication: CERVIX CARCINOMA
     Dosage: 400 MG/M2
     Route: 040
  2. MESNA. [Concomitant]
     Active Substance: MESNA
     Dosage: 3000 MG/M2 IN 1 L OF NORMAL SALINE DURING 24 HOURS
     Route: 042
  3. DEXTROSE. [Concomitant]
     Active Substance: DEXTROSE
     Dosage: 3 L(HYDRATION WITH 3 L OF 5%DEXTROSE SOLUTION DURING 24 HOURS WAS INFUSED SIMULTANEOUSLY)
  4. IFOSFAMIDE. [Suspect]
     Active Substance: IFOSFAMIDE
     Indication: CERVIX CARCINOMA
     Dosage: 5000 MG/M2, EVERY 3 WEEKS
     Route: 042
  5. SODIUM CHLORIDE. [Concomitant]
     Active Substance: SODIUM CHLORIDE
     Dosage: 1 L
     Route: 042
  6. POTASSIUM CHLORIDE. [Concomitant]
     Active Substance: POTASSIUM CHLORIDE
     Dosage: 10 MEQ/L
  7. SODIUM CHLORIDE. [Concomitant]
     Active Substance: SODIUM CHLORIDE
     Dosage: 1 L
     Route: 042
  8. SODIUM CHLORIDE. [Concomitant]
     Active Substance: SODIUM CHLORIDE
     Dosage: 1 L(DURING 24 HOURS)
     Route: 042
  9. DEXTROSE. [Concomitant]
     Active Substance: DEXTROSE
     Dosage: 1 L
  10. MAGNESIUM SULFATE. [Concomitant]
     Active Substance: MAGNESIUM SULFATE
     Dosage: 10 MEQ/L
  11. POTASSIUM CHLORIDE. [Concomitant]
     Active Substance: POTASSIUM CHLORIDE
     Dosage: 20 MEQ/L
  12. MESNA. [Concomitant]
     Active Substance: MESNA
     Dosage: 5000 MG/M2 DURING 24 HOURS IN 1 L OF NORMAL SALINE
     Route: 042
  13. CISPLATIN. [Suspect]
     Active Substance: CISPLATIN
     Indication: CERVIX CARCINOMA
     Dosage: 75 MG/M2, EVERY 3 WEEKS (ON DAY 2 AS A 60?MINUTE INFUSION)
  14. MAGNESIUM SULFATE. [Concomitant]
     Active Substance: MAGNESIUM SULFATE
     Dosage: 20 MEQ/L(GIVEN DURING 2 HOURS)

REACTIONS (3)
  - Thrombocytopenia [Unknown]
  - Cardiovascular disorder [Fatal]
  - Neutropenia [Unknown]
